FAERS Safety Report 8007698-X (Version None)
Quarter: 2011Q4

REPORT INFORMATION
  Report Type: 
  Country: None (occurrence: None)
  Receive Date: 20111222
  Receipt Date: 20111222
  Transmission Date: 20120403
  Serious: Yes (Life-Threatening, Hospitalization)
  Sender: FDA-Public Use
  Company Number: None

PATIENT
  Sex: Female
  Weight: 97.977 kg

DRUGS (1)
  1. ULORIC [Suspect]
     Indication: GOUT
     Dosage: TABLET ONE DAILY ORAL
     Route: 048
     Dates: start: 20111108, end: 20111113

REACTIONS (2)
  - CHILLS [None]
  - BODY TEMPERATURE INCREASED [None]
